FAERS Safety Report 7432368-6 (Version None)
Quarter: 2011Q2

REPORT INFORMATION
  Report Type: 
  Country: None (occurrence: None)
  Receive Date: 20110422
  Receipt Date: 20110420
  Transmission Date: 20111010
  Serious: Yes (Life-Threatening, Other)
  Sender: FDA-Public Use
  Company Number: US-PFIZER INC-2011086606

PATIENT
  Sex: Female

DRUGS (2)
  1. EFFEXOR XR [Suspect]
     Dosage: UNK
  2. PRISTIQ [Suspect]
     Dosage: UNK

REACTIONS (2)
  - SUICIDE ATTEMPT [None]
  - DEPRESSION [None]
